FAERS Safety Report 19091750 (Version 1)
Quarter: 2021Q2

REPORT INFORMATION
  Report Type: Spontaneous
  Country: US (occurrence: US)
  Receive Date: 20210402
  Receipt Date: 20210402
  Transmission Date: 20210717
  Serious: Yes (Death)
  Sender: FDA-Public Use
  Company Number: None

PATIENT
  Age: 74 Year
  Sex: Male
  Weight: 100 kg

DRUGS (17)
  1. ATORVASTATIN [Concomitant]
     Active Substance: ATORVASTATIN
  2. DIGOXIN 0.125MG [Concomitant]
  3. BRAFTOVI [Suspect]
     Active Substance: ENCORAFENIB
     Indication: MALIGNANT MELANOMA
     Route: 048
     Dates: start: 20210225
  4. ELIQUIS [Concomitant]
     Active Substance: APIXABAN
  5. METOPROLOL SUCCINATE 50MG [Concomitant]
     Active Substance: METOPROLOL SUCCINATE
  6. TRAMADOL 50MG [Concomitant]
     Active Substance: TRAMADOL
  7. MEKTOVI [Suspect]
     Active Substance: BINIMETINIB
     Indication: MALIGNANT MELANOMA
     Route: 048
     Dates: start: 20210225
  8. FLOMAX 0.4MG [Concomitant]
  9. CENTRUM MEN [Concomitant]
     Active Substance: MINERALS\VITAMINS
  10. HUMALOG [Concomitant]
     Active Substance: INSULIN LISPRO
  11. POTASSIUM PHOSHATE [Concomitant]
  12. FUROSEMIDE 40MG [Concomitant]
     Active Substance: FUROSEMIDE
  13. LANTUS [Concomitant]
     Active Substance: INSULIN GLARGINE
  14. VITAMIN D3 25MCG [Concomitant]
  15. ALDACTONE [Concomitant]
     Active Substance: SPIRONOLACTONE
  16. TYLENOL 8HR [Concomitant]
     Active Substance: ACETAMINOPHEN
  17. AMIODARONE 200MG [Concomitant]
     Active Substance: AMIODARONE

REACTIONS (1)
  - Death [None]

NARRATIVE: CASE EVENT DATE: 20210402
